FAERS Safety Report 4531054-X (Version None)
Quarter: 2004Q4

REPORT INFORMATION
  Report Type: 
  Country: None (occurrence: None)
  Receive Date: 20041126
  Receipt Date: 20040916
  Transmission Date: 20050328
  Serious: No
  Sender: FDA-Public Use
  Company Number: SU-2004-002690

PATIENT

DRUGS (1)
  1. BENICAR [Suspect]
     Indication: HYPERTENSION
     Dosage: MG  PO
     Route: 048

REACTIONS (1)
  - ABDOMINAL PAIN [None]
